FAERS Safety Report 4468276-2 (Version None)
Quarter: 2004Q4

REPORT INFORMATION
  Report Type: 
  Country: None (occurrence: None)
  Receive Date: 20041007
  Receipt Date: 20041001
  Transmission Date: 20050328
  Serious: Yes (Hospitalization)
  Sender: FDA-Public Use
  Company Number: ES-MERCK-0410ESP00014

PATIENT
  Age: 72 Year
  Sex: Female

DRUGS (14)
  1. ASPIRIN [Concomitant]
     Route: 065
  2. CAFINITRINIA [Concomitant]
     Route: 065
  3. CALCIUM CARBONATE AND CHOLECALCIFEROL [Concomitant]
     Route: 065
  4. CARVEDILOL [Concomitant]
     Route: 065
  5. DOLALGIAL [Concomitant]
     Route: 065
  6. DIGOXIN [Concomitant]
     Route: 065
  7. SEGURIL [Concomitant]
     Route: 065
  8. NITROGLYCERIN [Concomitant]
     Route: 065
  9. OMEPRAZOLE [Concomitant]
     Route: 065
  10. PRAVASTATIN SODIUM [Concomitant]
     Route: 065
  11. VIOXX [Suspect]
     Indication: OSTEOARTHRITIS
     Route: 048
     Dates: start: 20010101, end: 20041001
  12. SERTRALINE HYDROCHLORIDE [Concomitant]
     Route: 065
  13. ALDACTONE [Concomitant]
     Route: 065
  14. TICLID [Concomitant]
     Route: 065

REACTIONS (2)
  - ANGINA PECTORIS [None]
  - ATRIAL FIBRILLATION [None]
